FAERS Safety Report 19854874 (Version 2)
Quarter: 2021Q3

REPORT INFORMATION
  Report Type: Spontaneous
  Country: GB (occurrence: GB)
  Receive Date: 20210920
  Receipt Date: 20210923
  Transmission Date: 20211014
  Serious: No
  Sender: FDA-Public Use
  Company Number: GB-NOVOPROD-846458

PATIENT
  Sex: Female
  Weight: 153 kg

DRUGS (2)
  1. SAXENDA [Suspect]
     Active Substance: LIRAGLUTIDE
     Dosage: MAX DOSE OF 3 MG
     Route: 065
     Dates: end: 202003
  2. SAXENDA [Suspect]
     Active Substance: LIRAGLUTIDE
     Indication: OBESITY
     Dosage: UNK
     Route: 065
     Dates: start: 201911

REACTIONS (4)
  - Weight increased [Unknown]
  - Weight loss poor [Unknown]
  - Increased appetite [Unknown]
  - Drug effect less than expected [Unknown]
